FAERS Safety Report 9152265 (Version 1)
Quarter: 2013Q1

REPORT INFORMATION
  Report Type: Spontaneous
  Country: US (occurrence: US)
  Receive Date: 20130308
  Receipt Date: 20130308
  Transmission Date: 20140127
  Serious: Yes (Hospitalization)
  Sender: FDA-Public Use
  Company Number: GXBR2013US000678

PATIENT
  Age: 58 Year
  Sex: Female

DRUGS (1)
  1. AZITHROMYCIN [Suspect]
     Indication: PHARYNGITIS
     Dosage: 250 MG, QD
     Dates: start: 20130223, end: 20130224

REACTIONS (3)
  - Diplopia [Recovering/Resolving]
  - Vision blurred [Unknown]
  - Eye pain [Unknown]
